FAERS Safety Report 7583418-8 (Version None)
Quarter: 2011Q2

REPORT INFORMATION
  Report Type: 
  Country: None (occurrence: None)
  Receive Date: 20110623
  Receipt Date: 20110609
  Transmission Date: 20111010
  Serious: Yes (Death)
  Sender: FDA-Public Use
  Company Number: 2011P1007078

PATIENT
  Age: 75 Year
  Sex: Male
  Weight: 77.1115 kg

DRUGS (7)
  1. NORTRIPTYLINE HCL [Suspect]
     Indication: ANXIETY
     Dosage: 75 MG, HS, PO
     Route: 048
     Dates: start: 20080101
  2. NORTRIPTYLINE HCL [Suspect]
     Indication: DEPRESSION
     Dosage: 75 MG, HS, PO
     Route: 048
     Dates: start: 20080101
  3. JANUMET [Concomitant]
  4. FLOMAX [Concomitant]
  5. LISINOPRIL [Concomitant]
  6. METOPROLOL TARTRATE [Concomitant]
  7. INSULIN [Concomitant]

REACTIONS (5)
  - CARDIAC DISORDER [None]
  - DRUG ADMINISTRATION ERROR [None]
  - DRUG LEVEL INCREASED [None]
  - COLLAPSE OF LUNG [None]
  - SUDDEN DEATH [None]
